FAERS Safety Report 10818028 (Version 2)
Quarter: 2015Q1

REPORT INFORMATION
  Report Type: Spontaneous
  Country: SE (occurrence: SE)
  Receive Date: 20150218
  Receipt Date: 20150225
  Transmission Date: 20150721
  Serious: Yes (Death, Hospitalization)
  Sender: FDA-Public Use
  Company Number: SE-BAXTER-2015BAX007426

PATIENT
  Age: 70 Year
  Sex: Male
  Weight: 85 kg

DRUGS (3)
  1. PHYSIONEAL 40 GLUCOSE 13,6 MG/ML (1,36% W/V), PERITONEALDIALYSV?TSKA [Suspect]
     Active Substance: CALCIUM CHLORIDE\DEXTROSE\MAGNESIUM CHLORIDE\SODIUM CHLORIDE SOLUTION
     Route: 033
     Dates: start: 20141111, end: 20150207
  2. PHYSIONEAL 40 GLUCOSE 13,6 MG/ML (1,36% W/V), PERITONEALDIALYSV?TSKA [Suspect]
     Active Substance: CALCIUM CHLORIDE\DEXTROSE\MAGNESIUM CHLORIDE\SODIUM CHLORIDE SOLUTION
     Indication: PERITONEAL DIALYSIS
     Route: 033
     Dates: start: 20141010
  3. EXTRANEAL [Suspect]
     Active Substance: CALCIUM CHLORIDE\ICODEXTRIN\MAGNESIUM CHLORIDE\SODIUM CHLORIDE\SODIUM LACTATE
     Indication: PERITONEAL DIALYSIS
     Route: 033
     Dates: start: 20141010, end: 20150207

REACTIONS (2)
  - Peritonitis bacterial [Unknown]
  - Escherichia sepsis [Fatal]

NARRATIVE: CASE EVENT DATE: 20150207
